FAERS Safety Report 4937406-8 (Version None)
Quarter: 2006Q1

REPORT INFORMATION
  Report Type: 
  Country: None (occurrence: None)
  Receive Date: 20060306
  Receipt Date: 20060220
  Transmission Date: 20060701
  Serious: Yes (Hospitalization, Other)
  Sender: FDA-Public Use
  Company Number: 2006025729

PATIENT
  Age: 60 Year
  Sex: Female

DRUGS (4)
  1. DETROL LA [Suspect]
     Indication: BLADDER SPASM
     Dosage: 4 MG (4 MG, 1 IN 1 D), ORAL
     Route: 048
     Dates: start: 19980101
  2. DETROL LA [Suspect]
     Indication: INCONTINENCE
     Dosage: 4 MG (4 MG, 1 IN 1 D), ORAL
     Route: 048
     Dates: start: 19980101
  3. COREG [Concomitant]
  4. VYTORIN [Concomitant]

REACTIONS (4)
  - DRUG EFFECT DECREASED [None]
  - HEART RATE INCREASED [None]
  - HYSTERECTOMY [None]
  - MYOCARDIAL CALCIFICATION [None]
